FAERS Safety Report 24909598 (Version 1)
Quarter: 2025Q1

REPORT INFORMATION
  Report Type: Report from Study
  Country: US (occurrence: US)
  Receive Date: 20250131
  Receipt Date: 20250131
  Transmission Date: 20250409
  Serious: Yes (Other)
  Sender: ALEXION PHARMACEUTICALS
  Company Number: US-AstraZeneca-CH-00795837A

PATIENT

DRUGS (1)
  1. OSIMERTINIB [Suspect]
     Active Substance: OSIMERTINIB

REACTIONS (8)
  - Eczema [Unknown]
  - Thrombosis [Unknown]
  - Fatigue [Unknown]
  - Muscle spasms [Unknown]
  - White blood cell count decreased [Unknown]
  - Product dose omission issue [Unknown]
  - Cough [Unknown]
  - Irritable bowel syndrome [Unknown]
